FAERS Safety Report 6375642-7 (Version None)
Quarter: 2009Q3

REPORT INFORMATION
  Report Type: 
  Country: None (occurrence: None)
  Receive Date: 20090918
  Receipt Date: 20090918
  Transmission Date: 20100115
  Serious: Yes (Other)
  Sender: FDA-Public Use
  Company Number: None

PATIENT
  Age: 37 Year
  Sex: Female

DRUGS (1)
  1. CHANTIX [Suspect]
     Dosage: 1MG TAKE AS DIRECTED PO
     Route: 048
     Dates: start: 20090527, end: 20090820

REACTIONS (5)
  - AFFECT LABILITY [None]
  - ANGER [None]
  - ANXIETY [None]
  - DEPRESSION [None]
  - DYSPHORIA [None]
